FAERS Safety Report 7406856-2 (Version None)
Quarter: 2011Q2

REPORT INFORMATION
  Report Type: 
  Country: None (occurrence: None)
  Receive Date: 20110404
  Receipt Date: 20110328
  Transmission Date: 20111010
  Serious: Yes (Other)
  Sender: FDA-Public Use
  Company Number: 2011SP014059

PATIENT
  Sex: Female

DRUGS (1)
  1. CLARITIN [Suspect]
     Indication: PRODUCT USED FOR UNKNOWN INDICATION
     Dosage: ONCE;PO
     Route: 048
     Dates: start: 20110328

REACTIONS (4)
  - CONTUSION [None]
  - VASCULAR RUPTURE [None]
  - SWOLLEN TONGUE [None]
  - HYPERSENSITIVITY [None]
